FAERS Safety Report 6422154-8 (Version None)
Quarter: 2009Q4

REPORT INFORMATION
  Report Type: 
  Country: None (occurrence: None)
  Receive Date: 20091029
  Receipt Date: 20091029
  Transmission Date: 20100525
  Serious: Yes (Death)
  Sender: FDA-Public Use
  Company Number: None

PATIENT
  Sex: Male

DRUGS (8)
  1. REVLIMID [Suspect]
     Indication: MULTIPLE MYELOMA
     Dosage: REVLIMID 10 MG 3X/WK POST DIALYSIS ORAL
     Route: 048
     Dates: start: 20090227, end: 20090428
  2. DEXAMETHASONE [Concomitant]
  3. PROCRIT [Concomitant]
  4. RENAGEL OMEPRAZOLE [Concomitant]
  5. MEGESTROL ACETATE [Concomitant]
  6. ASPIRIN [Concomitant]
  7. FORTICAL [Concomitant]
  8. VITAMIN B COMPLEX CAP [Concomitant]

REACTIONS (7)
  - ANAEMIA [None]
  - DISEASE PROGRESSION [None]
  - HYPOTENSION [None]
  - INFECTION [None]
  - MULTIPLE MYELOMA [None]
  - PLATELET COUNT DECREASED [None]
  - TACHYARRHYTHMIA [None]
